FAERS Safety Report 9096563 (Version 2)
Quarter: 2013Q2

REPORT INFORMATION
  Report Type: Spontaneous
  Country: US (occurrence: US)
  Receive Date: 20130211
  Receipt Date: 20130502
  Transmission Date: 20140414
  Serious: Yes (Life-Threatening, Hospitalization, Other)
  Sender: FDA-Public Use
  Company Number: PHEH2013US003242

PATIENT
  Age: 80 Year
  Sex: Female
  Weight: 51 kg

DRUGS (13)
  1. RECLAST [Suspect]
     Indication: OSTEOPOROSIS
     Dosage: 5 MG/100ML
     Route: 042
     Dates: start: 20130123
  2. PRADAXA [Concomitant]
     Indication: ATRIAL FIBRILLATION
     Dosage: UNK
  3. XARELTO [Concomitant]
     Indication: ATRIAL FIBRILLATION
     Dosage: 50 MG
     Route: 048
  4. HYDROCHOROTHIAZIDE [Concomitant]
     Indication: HYPERTENSION
     Dosage: UNK
     Route: 048
  5. AMLODIPINE [Concomitant]
     Indication: HYPERTENSION
     Dosage: 5 MG, UNK
     Route: 048
  6. ATENOLOL [Concomitant]
     Indication: HYPERTENSION
     Dosage: 50 MG, BID
     Route: 048
  7. ZOCOR [Concomitant]
     Indication: HYPERLIPIDAEMIA
     Dosage: 20 MG, QD
     Route: 048
  8. CITRACAL + D [Concomitant]
     Indication: OSTEOPOROSIS
     Dosage: 2 DF, BID
     Route: 048
  9. SIMVASTATIN [Concomitant]
     Indication: HYPERLIPIDAEMIA
     Dosage: 20 MG, QD
     Route: 048
  10. BENICAR [Concomitant]
     Indication: HYPERTENSION
  11. CEFTRIAXON [Concomitant]
  12. LEVAQUIN [Concomitant]
  13. VANCOMYCIN [Concomitant]

REACTIONS (38)
  - Hyponatraemia [Recovered/Resolved]
  - Confusional state [Recovered/Resolved]
  - Vomiting [Recovered/Resolved]
  - Encephalopathy [Unknown]
  - Aphasia [Unknown]
  - Malaise [Unknown]
  - Lethargy [Unknown]
  - Asthenia [Unknown]
  - Hypophagia [Unknown]
  - Hypokalaemia [Unknown]
  - Hypovolaemia [Unknown]
  - Speech disorder [Unknown]
  - Mucosal dryness [Unknown]
  - Electrolyte imbalance [Unknown]
  - Unresponsive to stimuli [Unknown]
  - Nervous system disorder [Unknown]
  - Depressed level of consciousness [Unknown]
  - Nausea [Unknown]
  - Atrophy [Unknown]
  - Crepitations [Unknown]
  - Limb discomfort [Unknown]
  - Heart rate irregular [Unknown]
  - Protein total decreased [Unknown]
  - Haematocrit decreased [Unknown]
  - Breath sounds abnormal [Unknown]
  - Blood chloride decreased [Unknown]
  - Mean cell volume decreased [Unknown]
  - Blood phosphorus decreased [Unknown]
  - Protein albumin ratio decreased [Unknown]
  - White blood cell count increased [Unknown]
  - Activated partial thromboplastin time prolonged [Unknown]
  - Pain [Unknown]
  - Pyrexia [Recovering/Resolving]
  - Blood urea increased [Unknown]
  - Haemoglobin decreased [Unknown]
  - Blood calcium decreased [Unknown]
  - Red blood cell count decreased [Unknown]
  - Blood pressure diastolic decreased [Unknown]
